FAERS Safety Report 26174253 (Version 1)
Quarter: 2025Q4

REPORT INFORMATION
  Report Type: Spontaneous
  Country: EU (occurrence: EU)
  Receive Date: 20251218
  Receipt Date: 20251218
  Transmission Date: 20260118
  Serious: Yes (Life-Threatening, Hospitalization, Other)
  Sender: STRIDES
  Company Number: EU-STRIDES ARCOLAB LIMITED-2025SP015726

PATIENT
  Age: 35 Year
  Sex: Male

DRUGS (5)
  1. FUROSEMIDE [Suspect]
     Active Substance: FUROSEMIDE
     Indication: Cardiogenic shock
     Dosage: UNK
     Route: 065
     Dates: start: 2024
  2. DIGOXIN [Suspect]
     Active Substance: DIGOXIN
     Indication: Cardiogenic shock
     Dosage: UNK
     Route: 065
     Dates: start: 2024
  3. MILRINONE [Suspect]
     Active Substance: MILRINONE
     Indication: Cardiogenic shock
     Dosage: UNK
     Route: 065
     Dates: start: 2024
  4. BISOPROLOL [Concomitant]
     Active Substance: BISOPROLOL
     Indication: Cardiac failure
     Route: 065
     Dates: start: 2023
  5. AMIODARONE [Concomitant]
     Active Substance: AMIODARONE
     Indication: Cardiogenic shock
     Route: 065
     Dates: start: 2024

REACTIONS (2)
  - Condition aggravated [Recovering/Resolving]
  - Off label use [Unknown]
